FAERS Safety Report 6389740-5 (Version None)
Quarter: 2009Q4

REPORT INFORMATION
  Report Type: 
  Country: None (occurrence: None)
  Receive Date: 20091001
  Receipt Date: 20090916
  Transmission Date: 20100525
  Serious: Yes (Hospitalization)
  Sender: FDA-Public Use
  Company Number: TPA2009A02747

PATIENT
  Age: 48 Year
  Sex: Female
  Weight: 75 kg

DRUGS (15)
  1. ACTOS [Suspect]
     Indication: DIABETES MELLITUS
     Dosage: 30 MG, 1 IN 1 D), PER ORAL
     Route: 048
     Dates: start: 20090509, end: 20090909
  2. RITONAVIR [Concomitant]
  3. RALTEGRAVIR (ALL OTHER THERAPEUTIC PRODUCTS) [Concomitant]
  4. DARUNAVIR (ALL OTHER THERAPEUTIC PRODUCTS) [Concomitant]
  5. ETRAVIRINE (ALL OTHER THERAPEUTIC PRODUCTS) [Concomitant]
  6. CELEBREX [Concomitant]
  7. ACYCLOVIR [Concomitant]
  8. CALCIUM PLUS D (ERGOCALCIFEROL, CALCIUM PHOSPHATE, CALCIUM SODIUM LACT [Concomitant]
  9. FISH OIL (FISH OIL) [Concomitant]
  10. CARNITINE (CARNITINE) [Concomitant]
  11. CHOLINE (CHOLINE) [Concomitant]
  12. ASPIRIN [Concomitant]
  13. METFORMIN HCL [Concomitant]
  14. PRAVASTATIN [Concomitant]
  15. BENICAR [Concomitant]

REACTIONS (3)
  - ANAEMIA [None]
  - ASTHENIA [None]
  - THROMBOCYTOPENIA [None]
